FAERS Safety Report 14615156 (Version 2)
Quarter: 2018Q2

REPORT INFORMATION
  Report Type: Spontaneous
  Country: US (occurrence: US)
  Receive Date: 20180308
  Receipt Date: 20180531
  Transmission Date: 20180711
  Serious: Yes (Death, Hospitalization)
  Sender: FDA-Public Use
  Company Number: US-PFIZER INC-2018091523

PATIENT
  Age: 82 Year
  Sex: Female
  Weight: 47.62 kg

DRUGS (2)
  1. REVATIO [Suspect]
     Active Substance: SILDENAFIL CITRATE
     Indication: PULMONARY HYPERTENSION
     Dosage: 20 MG, 3X/DAY
  2. REVATIO [Suspect]
     Active Substance: SILDENAFIL CITRATE
     Indication: PULMONARY FIBROSIS
     Dosage: 20 MG, 3X/DAY
     Dates: start: 201704, end: 20180525

REACTIONS (7)
  - Pulmonary oedema [Unknown]
  - Fall [Unknown]
  - Carbon dioxide increased [Unknown]
  - Abnormal behaviour [Unknown]
  - Oedema peripheral [Unknown]
  - Scratch [Unknown]
  - Pneumonia [Fatal]

NARRATIVE: CASE EVENT DATE: 20180526
